FAERS Safety Report 5961139-2 (Version None)
Quarter: 2008Q4

REPORT INFORMATION
  Report Type: 
  Country: None (occurrence: None)
  Receive Date: 20081121
  Receipt Date: 20081113
  Transmission Date: 20090506
  Serious: Yes (Hospitalization)
  Sender: FDA-Public Use
  Company Number: CN-JNJFOC-20081104175

PATIENT

DRUGS (2)
  1. ANTUSS INFANTS DECONGESTANT + COUGH [Suspect]
     Indication: COUGH
     Route: 048
  2. UNSPECIFIED MEDICATION [Concomitant]
     Indication: PROBIOTIC THERAPY

REACTIONS (1)
  - MOVEMENT DISORDER [None]
